FAERS Safety Report 5848191-X (Version None)
Quarter: 2008Q3

REPORT INFORMATION
  Report Type: 
  Country: None (occurrence: None)
  Receive Date: 20080818
  Receipt Date: 20080812
  Transmission Date: 20090109
  Serious: Yes (Other)
  Sender: FDA-Public Use
  Company Number: B0361005A

PATIENT
  Age: 35 Year
  Sex: Female

DRUGS (8)
  1. SEROXAT [Suspect]
     Route: 065
     Dates: start: 19960103
  2. VENLAFAXINE HCL [Concomitant]
     Route: 065
     Dates: start: 20011012
  3. ZISPIN [Concomitant]
     Route: 065
     Dates: start: 20011120
  4. DIAZEPAM [Concomitant]
     Route: 065
     Dates: start: 20011012
  5. PROZAC [Concomitant]
     Route: 065
     Dates: start: 20041029, end: 20041101
  6. OXAZEPAM [Concomitant]
     Dosage: 10MG AS REQUIRED
     Route: 065
     Dates: start: 20010201
  7. AMITRIPTYLINE HCL [Concomitant]
     Route: 065
  8. TEMAZEPAM [Concomitant]
     Dosage: 10MG AT NIGHT
     Route: 065
     Dates: start: 20071001

REACTIONS (31)
  - ABORTION SPONTANEOUS [None]
  - AGITATION [None]
  - ANXIETY [None]
  - APATHY [None]
  - ASTHENIA [None]
  - CONFUSIONAL STATE [None]
  - DECREASED APPETITE [None]
  - DEPRESSED MOOD [None]
  - DEPRESSION [None]
  - DIZZINESS [None]
  - DRUG EXPOSURE DURING PREGNANCY [None]
  - DYSPHAGIA [None]
  - DYSPNOEA [None]
  - FLUSHING [None]
  - HEART RATE INCREASED [None]
  - HYPERVENTILATION [None]
  - INSOMNIA [None]
  - IRRITABILITY [None]
  - LIVER FUNCTION TEST ABNORMAL [None]
  - NAUSEA [None]
  - NIGHT SWEATS [None]
  - NIGHTMARE [None]
  - PANIC ATTACK [None]
  - PARAESTHESIA [None]
  - RESTLESSNESS [None]
  - SLEEP DISORDER [None]
  - SUICIDAL IDEATION [None]
  - TEARFULNESS [None]
  - TREMOR [None]
  - WEIGHT INCREASED [None]
  - WITHDRAWAL SYNDROME [None]
